FAERS Safety Report 9998153 (Version 1)
Quarter: 2014Q1

REPORT INFORMATION
  Report Type: Spontaneous
  Country: US (occurrence: US)
  Receive Date: 20140311
  Receipt Date: 20140311
  Transmission Date: 20141002
  Serious: Yes (Hospitalization)
  Sender: FDA-Public Use
  Company Number: US-GILEAD-2014-0096500

PATIENT
  Sex: Female

DRUGS (14)
  1. LETAIRIS [Suspect]
     Indication: PULMONARY ARTERIAL HYPERTENSION
     Dosage: 10 MG, QD
     Route: 048
     Dates: start: 20120224
  2. GLIPIZIDE [Concomitant]
  3. VITAMIN D                          /00107901/ [Concomitant]
  4. DILTIAZEM [Concomitant]
  5. VICODIN [Concomitant]
  6. ASPIRIN [Concomitant]
  7. MECLIZINE                          /00072801/ [Concomitant]
  8. TRAZODONE [Concomitant]
  9. METOLAZONE [Concomitant]
  10. WELLBUTRIN [Concomitant]
  11. KLOR-CON [Concomitant]
  12. LASIX                              /00032601/ [Concomitant]
  13. CRESTOR [Concomitant]
  14. CELEXA                             /00582602/ [Concomitant]

REACTIONS (2)
  - Fall [Recovered/Resolved]
  - Cardiac disorder [Recovered/Resolved]
